FAERS Safety Report 9443051 (Version 1)
Quarter: 2013Q3

REPORT INFORMATION
  Report Type: Report from Study
  Country: US (occurrence: US)
  Receive Date: 20130806
  Receipt Date: 20130806
  Transmission Date: 20140515
  Serious: Yes (Other)
  Sender: FDA-Public Use
  Company Number: US-JNJFOC-20130801437

PATIENT
  Sex: Female

DRUGS (2)
  1. REMICADE [Suspect]
     Indication: CROHN^S DISEASE
     Route: 042
  2. METHOTREXATE [Suspect]
     Indication: CROHN^S DISEASE
     Route: 065

REACTIONS (2)
  - Arthritis enteropathic [Unknown]
  - Nausea [Unknown]
